FAERS Safety Report 15788265 (Version 2)
Quarter: 2019Q1

REPORT INFORMATION
  Report Type: Spontaneous
  Country: US (occurrence: US)
  Receive Date: 20190104
  Receipt Date: 20190125
  Transmission Date: 20190417
  Serious: Yes (Other)
  Sender: FDA-Public Use
  Company Number: US-AUROBINDO-AUR-APL-2019-000053

PATIENT
  Age: 31 Year
  Sex: Male
  Weight: 80 kg

DRUGS (21)
  1. FENTANYL. [Concomitant]
     Active Substance: FENTANYL
     Indication: WOUND COMPLICATION
  2. METHADONE [Concomitant]
     Active Substance: METHADONE HYDROCHLORIDE
     Indication: WOUND COMPLICATION
     Dosage: INITIAL DOSE
  3. PARACETAMOL [Concomitant]
     Active Substance: ACETAMINOPHEN
     Indication: CANCER PAIN
  4. NIVOLUMAB [Concomitant]
     Active Substance: NIVOLUMAB
     Indication: SQUAMOUS CELL CARCINOMA
  5. KETAMINE [Concomitant]
     Active Substance: KETAMINE
  6. METHADONE [Concomitant]
     Active Substance: METHADONE HYDROCHLORIDE
     Indication: CANCER PAIN
     Dosage: ESCALATING DOSES OF SCHEDULED METHADONE
  7. PREDNISONE. [Concomitant]
     Active Substance: PREDNISONE
     Indication: PYODERMA GANGRENOSUM
  8. LIDOCAINE INJECTION [Suspect]
     Active Substance: LIDOCAINE
     Indication: WOUND COMPLICATION
     Dosage: A CONTINUOUS INFUSION OF LIDOCAINE 60MG/HOUR WAS INITIATED
     Route: 042
  9. HYDROMORPHONE [Concomitant]
     Active Substance: HYDROMORPHONE
     Indication: WOUND COMPLICATION
     Dosage: PUSH
     Route: 042
  10. FENTANYL. [Concomitant]
     Active Substance: FENTANYL
     Indication: CANCER PAIN
  11. LIDOCAINE INJECTION [Suspect]
     Active Substance: LIDOCAINE
     Dosage: 48 MILLIGRAM, EVERY HOUR
     Route: 042
  12. LIDOCAINE INJECTION [Suspect]
     Active Substance: LIDOCAINE
     Dosage: 24 MILLIGRAM, EVERY HOUR
     Route: 042
  13. HYDROMORPHONE [Concomitant]
     Active Substance: HYDROMORPHONE
     Indication: CANCER PAIN
  14. MORPHINE [Concomitant]
     Active Substance: MORPHINE
     Indication: CANCER PAIN
  15. GABAPENTIN. [Concomitant]
     Active Substance: GABAPENTIN
     Indication: WOUND COMPLICATION
     Dosage: INITIAL DOSE
  16. GABAPENTIN. [Concomitant]
     Active Substance: GABAPENTIN
     Indication: CANCER PAIN
     Dosage: ESCALATING DOSES OF SCHEDULED GABAPENTIN
  17. LIDOCAINE INJECTION [Suspect]
     Active Substance: LIDOCAINE
     Dosage: 36 MILLIGRAM, EVERY HOUR
     Route: 042
  18. MORPHINE [Concomitant]
     Active Substance: MORPHINE
     Indication: WOUND COMPLICATION
  19. KETAMINE [Concomitant]
     Active Substance: KETAMINE
     Indication: MUSCULOSKELETAL PAIN
     Dosage: TITRATED TO 10 MG/HOUR
  20. LIDOCAINE INJECTION [Suspect]
     Active Substance: LIDOCAINE
     Indication: CANCER PAIN
     Dosage: INTRAVENOUS LIDOCAINE 150MG INFUSED FOR 30 MINUTES TWICE DAILY BEFORE DRESSING CHANGES, BOLUS
     Route: 040
  21. PARACETAMOL [Concomitant]
     Active Substance: ACETAMINOPHEN
     Indication: WOUND COMPLICATION

REACTIONS (3)
  - Confusional state [Recovering/Resolving]
  - Drug level increased [Recovering/Resolving]
  - Lethargy [Recovering/Resolving]
